FAERS Safety Report 4623228-4 (Version None)
Quarter: 2005Q1

REPORT INFORMATION
  Report Type: 
  Country: None (occurrence: None)
  Receive Date: 20050329
  Receipt Date: 20050317
  Transmission Date: 20050727
  Serious: Yes (Hospitalization)
  Sender: FDA-Public Use
  Company Number: 03-000335

PATIENT
  Age: 50 Year
  Sex: Female

DRUGS (4)
  1. FEMHRT [Suspect]
     Indication: HORMONE REPLACEMENT THERAPY
     Dosage: 5/1000UG QD, ORAL
     Route: 048
     Dates: start: 20020701, end: 20021113
  2. PRAVASTATIN SODIUM [Concomitant]
  3. VITAMINS [Concomitant]
  4. PROVELLA-14 (ESTROGENS CONJUGATED, MEDROXYPROGESTERONE ACETATE) [Concomitant]

REACTIONS (10)
  - ABDOMINAL ABSCESS [None]
  - GASTRIC PERFORATION [None]
  - GASTRIC ULCER [None]
  - GASTROINTESTINAL NECROSIS [None]
  - HOT FLUSH [None]
  - HYPERHIDROSIS [None]
  - NEURILEMMOMA [None]
  - POST PROCEDURAL COMPLICATION [None]
  - WEIGHT DECREASED [None]
  - WEIGHT INCREASED [None]
